FAERS Safety Report 4596014-1 (Version None)
Quarter: 2005Q1

REPORT INFORMATION
  Report Type: 
  Country: None (occurrence: None)
  Receive Date: 20050224
  Receipt Date: 20050211
  Transmission Date: 20050727
  Serious: Yes (Hospitalization)
  Sender: FDA-Public Use
  Company Number: 2004CG01557

PATIENT
  Age: 41 Year
  Sex: Female
  Weight: 52 kg

DRUGS (2)
  1. ARIMIDEX [Suspect]
     Indication: BREAST CANCER
     Dosage: 1 MG QD PO
     Route: 048
     Dates: start: 20040501, end: 20040806
  2. ENANTONE [Concomitant]

REACTIONS (8)
  - ARTHROPOD BITE [None]
  - ASTHENIA [None]
  - CYTOLYTIC HEPATITIS [None]
  - HYPERHIDROSIS [None]
  - INFLAMMATION [None]
  - PANCYTOPENIA [None]
  - PYREXIA [None]
  - THYROID NEOPLASM [None]
